FAERS Safety Report 12550360 (Version 1)
Quarter: 2016Q3

REPORT INFORMATION
  Report Type: Spontaneous
  Country: IT (occurrence: IT)
  Receive Date: 20160712
  Receipt Date: 20160712
  Transmission Date: 20161109
  Serious: Yes (Other)
  Sender: FDA-Public Use
  Company Number: IT-PFIZER INC-2016335005

PATIENT
  Age: 56 Year
  Sex: Female

DRUGS (3)
  1. HALCION [Suspect]
     Active Substance: TRIAZOLAM
     Dosage: UNK
     Route: 048
     Dates: start: 20160615, end: 20160615
  2. CARBOLITHIUM [Suspect]
     Active Substance: LITHIUM CARBONATE
     Dosage: UNK
     Route: 048
     Dates: start: 20160615, end: 20160615
  3. LYRICA [Suspect]
     Active Substance: PREGABALIN
     Dosage: UNK
     Route: 048
     Dates: start: 20160615, end: 20160615

REACTIONS (3)
  - Drug abuse [Unknown]
  - Sopor [Unknown]
  - Unresponsive to stimuli [Unknown]

NARRATIVE: CASE EVENT DATE: 20160615
